FAERS Safety Report 9006734 (Version 1)
Quarter: 2013Q1

REPORT INFORMATION
  Report Type: Spontaneous
  Country: CN (occurrence: CN)
  Receive Date: 20130110
  Receipt Date: 20130110
  Transmission Date: 20140127
  Serious: Yes (Other)
  Sender: FDA-Public Use
  Company Number: CN-BAYER-2013-001883

PATIENT
  Age: 85 Year
  Sex: Male
  Weight: 72 kg

DRUGS (3)
  1. AVELOX [Suspect]
     Indication: BRONCHITIS
     Dosage: 0.4 G, QD
     Route: 048
     Dates: start: 20100618
  2. AVELOX [Suspect]
     Indication: BRONCHITIS
     Dosage: 0.4 G, QD
     Dates: start: 20100621, end: 20100625
  3. TYLENOL [PARACETAMOL] [Concomitant]
     Dosage: 1 DF, UNK
     Route: 048

REACTIONS (1)
  - Agranulocytosis [Recovering/Resolving]
